FAERS Safety Report 16490969 (Version 1)
Quarter: 2019Q2

REPORT INFORMATION
  Report Type: Report from Study
  Country: CO (occurrence: CO)
  Receive Date: 20190628
  Receipt Date: 20190628
  Transmission Date: 20190711
  Serious: Yes (Death)
  Sender: FDA-Public Use
  Company Number: CO-ACTELION-A-CH2019-192432

PATIENT
  Age: 44 Year
  Sex: Female

DRUGS (1)
  1. OPSUMIT [Suspect]
     Active Substance: MACITENTAN
     Indication: PULMONARY ARTERIAL HYPERTENSION
     Dosage: 10 MG
     Route: 048

REACTIONS (4)
  - Cardiac arrest [Fatal]
  - Lung disorder [Fatal]
  - Cardio-respiratory distress [Fatal]
  - Completed suicide [Fatal]

NARRATIVE: CASE EVENT DATE: 20190622
